FAERS Safety Report 5732569-9 (Version None)
Quarter: 2008Q2

REPORT INFORMATION
  Report Type: 
  Country: None (occurrence: None)
  Receive Date: 20080507
  Receipt Date: 20080425
  Transmission Date: 20081010
  Serious: Yes (Other)
  Sender: FDA-Public Use
  Company Number: 2008BI011026

PATIENT
  Sex: Female

DRUGS (2)
  1. AVONEX [Suspect]
     Indication: MULTIPLE SCLEROSIS
     Dosage: IM
     Route: 030
     Dates: start: 19960101, end: 19980101
  2. MITOXANTRONE [Concomitant]

REACTIONS (9)
  - ACUTE MYELOID LEUKAEMIA [None]
  - BLOOD ALKALINE PHOSPHATASE INCREASED [None]
  - CHRONIC MYELOID LEUKAEMIA [None]
  - CONDITION AGGRAVATED [None]
  - MULTIPLE SCLEROSIS [None]
  - OPTIC NEURITIS [None]
  - PREGNANCY [None]
  - STEM CELL TRANSPLANT [None]
  - URINARY TRACT INFECTION [None]
